FAERS Safety Report 4329130-X (Version None)
Quarter: 2004Q2

REPORT INFORMATION
  Report Type: 
  Country: None (occurrence: None)
  Receive Date: 20040401
  Receipt Date: 20040211
  Transmission Date: 20050107
  Serious: Yes (Death, Hospitalization)
  Sender: FDA-Public Use
  Company Number: US-BRISTOL-MYERS SQUIBB COMPANY-12503652

PATIENT
  Age: 69 Year
  Sex: Female

DRUGS (8)
  1. CETUXIMAB [Suspect]
     Indication: COLORECTAL CANCER
     Dosage: LOADING DOSE 400 MG/M2 ON 12-JAN-04
     Route: 042
     Dates: start: 20040120, end: 20040120
  2. PROZAC [Concomitant]
     Dates: end: 20040204
  3. ADVAIR DISKUS 100/50 [Concomitant]
  4. SYNTHROID [Concomitant]
  5. B12 [Concomitant]
     Dates: end: 20040204
  6. OXYCONTIN [Concomitant]
  7. PERCOCET [Concomitant]
     Dates: end: 20040204
  8. ASPIRIN [Concomitant]

REACTIONS (8)
  - ANXIETY [None]
  - COLORECTAL CANCER [None]
  - DEATH [None]
  - DEHYDRATION [None]
  - DEPRESSION [None]
  - DIARRHOEA [None]
  - MALIGNANT NEOPLASM PROGRESSION [None]
  - PAIN [None]
